FAERS Safety Report 7514587-3 (Version None)
Quarter: 2011Q2

REPORT INFORMATION
  Report Type: 
  Country: None (occurrence: None)
  Receive Date: 20110601
  Receipt Date: 20110524
  Transmission Date: 20111010
  Serious: Yes (Hospitalization)
  Sender: FDA-Public Use
  Company Number: US-ELI_LILLY_AND_COMPANY-US201105007639

PATIENT
  Sex: Female

DRUGS (4)
  1. ORAL ANTIDIABETICS [Concomitant]
     Dosage: UNK
  2. PREVEX [Concomitant]
     Dosage: UNK
  3. HUMALOG MIX 75/25 [Suspect]
     Dosage: UNK, PRN
     Dates: start: 20040101
  4. HUMALOG MIX 75/25 [Suspect]
     Indication: DIABETES MELLITUS
     Dosage: 80 U, BID
     Dates: start: 20040101

REACTIONS (2)
  - ANXIETY [None]
  - ASTHENIA [None]
